FAERS Safety Report 6770296-X (Version None)
Quarter: 2010Q2

REPORT INFORMATION
  Report Type: 
  Country: None (occurrence: None)
  Receive Date: 20100615
  Receipt Date: 20100611
  Transmission Date: 20101027
  Serious: Yes (Other)
  Sender: FDA-Public Use
  Company Number: US-BRISTOL-MYERS SQUIBB COMPANY-15146046

PATIENT
  Sex: Female

DRUGS (5)
  1. ABILIFY [Suspect]
  2. PAMELOR [Concomitant]
  3. PRILOSEC [Concomitant]
  4. KLONOPIN [Concomitant]
  5. REMERON [Concomitant]

REACTIONS (3)
  - DYSARTHRIA [None]
  - MANIA [None]
  - TREMOR [None]
